FAERS Safety Report 9376294 (Version 1)
Quarter: 2013Q2

REPORT INFORMATION
  Report Type: Spontaneous
  Country: US (occurrence: None)
  Receive Date: 20130628
  Receipt Date: 20130628
  Transmission Date: 20140414
  Serious: Yes (Other)
  Sender: FDA-Public Use
  Company Number: None

PATIENT
  Age: 67 Year
  Sex: Female
  Weight: 64.41 kg

DRUGS (2)
  1. CELEBREX [Suspect]
     Indication: INFLAMMATION
     Dosage: ONE CAPSULE
     Route: 048
     Dates: start: 20130627, end: 20130627
  2. CELEBREX [Suspect]
     Indication: NECK PAIN
     Dosage: ONE CAPSULE
     Route: 048
     Dates: start: 20130627, end: 20130627

REACTIONS (3)
  - Vomiting [None]
  - Hyperhidrosis [None]
  - Mobility decreased [None]
